FAERS Safety Report 9856440 (Version 1)
Quarter: 2014Q1

REPORT INFORMATION
  Report Type: Spontaneous
  Country: GB (occurrence: GB)
  Receive Date: 20140130
  Receipt Date: 20140130
  Transmission Date: 20141002
  Serious: Yes (Hospitalization, Other)
  Sender: FDA-Public Use
  Company Number: GB-PFIZER INC-2014025440

PATIENT
  Age: 40 Year
  Sex: Male

DRUGS (1)
  1. CHAMPIX [Suspect]
     Indication: SMOKING CESSATION THERAPY

REACTIONS (4)
  - Suicidal behaviour [Unknown]
  - Substance-induced psychotic disorder [Unknown]
  - Paranoia [Unknown]
  - Derealisation [Unknown]
